FAERS Safety Report 20685819 (Version 5)
Quarter: 2022Q4

REPORT INFORMATION
  Report Type: Spontaneous
  Country: US (occurrence: US)
  Receive Date: 20220407
  Receipt Date: 20221017
  Transmission Date: 20230113
  Serious: Yes (Hospitalization)
  Sender: FDA-Public Use
  Company Number: US-PFIZER INC-202200029809

PATIENT
  Age: 60 Year
  Sex: Female

DRUGS (1)
  1. IBRANCE [Suspect]
     Active Substance: PALBOCICLIB
     Indication: Ovarian cancer
     Dosage: 75 MG

REACTIONS (9)
  - Gastrointestinal stoma complication [Unknown]
  - Off label use [Unknown]
  - White blood cell count decreased [Unknown]
  - Epigastric discomfort [Unknown]
  - Irritable bowel syndrome [Unknown]
  - Tumour marker increased [Unknown]
  - Malaise [Unknown]
  - Asthenia [Unknown]
  - Fatigue [Unknown]

NARRATIVE: CASE EVENT DATE: 20220101
